FAERS Safety Report 8142237-4 (Version None)
Quarter: 2012Q1

REPORT INFORMATION
  Report Type: 
  Country: None (occurrence: None)
  Receive Date: 20120216
  Receipt Date: 20120211
  Transmission Date: 20120608
  Serious: Yes (Other)
  Sender: FDA-Public Use
  Company Number: US-BAYER-2011-074984

PATIENT
  Age: 21 Year
  Sex: Female
  Weight: 64 kg

DRUGS (4)
  1. ALBUTEROL [Concomitant]
     Indication: ASTHMA
     Dosage: UNK
     Dates: start: 19990101
  2. COMBIVENT [Concomitant]
  3. YASMIN [Suspect]
     Indication: CONTRACEPTION
     Dosage: UNK
     Dates: start: 20060101, end: 20090701
  4. DROSPIRENONE AND ETHINYL ESTRADIOL [Suspect]
     Indication: CONTRACEPTION
     Dosage: UNK
     Dates: start: 20060101, end: 20090701

REACTIONS (4)
  - INJURY [None]
  - GALLBLADDER INJURY [None]
  - PAIN [None]
  - CHOLECYSTITIS CHRONIC [None]
